FAERS Safety Report 10279462 (Version 1)
Quarter: 2014Q3

REPORT INFORMATION
  Report Type: Spontaneous
  Country: NL (occurrence: NL)
  Receive Date: 20140707
  Receipt Date: 20140707
  Transmission Date: 20150326
  Serious: Yes (Other)
  Sender: FDA-Public Use
  Company Number: NL-ROCHE-CID000000003455213

PATIENT
  Sex: Female

DRUGS (2)
  1. XELODA [Suspect]
     Active Substance: CAPECITABINE
     Route: 048
     Dates: start: 201312, end: 201403
  2. XELODA [Suspect]
     Active Substance: CAPECITABINE
     Indication: BREAST CANCER
     Dosage: DOSE WAS LOWERED TO 83 PERCENT
     Route: 048
     Dates: start: 20111029, end: 201204

REACTIONS (4)
  - Ascites [Unknown]
  - Palmar-plantar erythrodysaesthesia syndrome [Unknown]
  - Liver function test abnormal [Recovering/Resolving]
  - Disease progression [Unknown]

NARRATIVE: CASE EVENT DATE: 201112
